FAERS Safety Report 5173987-X (Version None)
Quarter: 2006Q4

REPORT INFORMATION
  Report Type: 
  Country: None (occurrence: None)
  Receive Date: 20061206
  Receipt Date: 20061127
  Transmission Date: 20070319
  Serious: Yes (Life-Threatening, Hospitalization)
  Sender: FDA-Public Use
  Company Number: SPV1-2006-01902

PATIENT
  Age: 31 Year
  Sex: Female
  Weight: 52.2 kg

DRUGS (8)
  1. ADDERALL 10 [Suspect]
     Dosage: 30 MG, 2X/DAY:  BID, ORAL
     Route: 048
     Dates: start: 20030101
  2. GABITRIL [Suspect]
     Indication: TEMPORAL LOBE EPILEPSY
     Dosage: 16 MG UP TO 120 30 MG, ORAL
     Route: 048
     Dates: start: 20031101, end: 20040101
  3. XANAX [Suspect]
     Dosage: 1
     Dates: end: 20060201
  4. NEURONTIN [Suspect]
     Dosage: 2400 MG, 1X/DAY:  QD,
     Dates: start: 20040101
  5. LEXAPRO [Suspect]
     Dosage: 30 MG, 2X/DAY:  BID, ORAL
     Route: 048
     Dates: start: 20031101
  6. SYNTHROID [Concomitant]
  7. KEPPRA [Concomitant]
  8. REMERON [Concomitant]

REACTIONS (30)
  - AGGRESSION [None]
  - AGITATION [None]
  - ANTEROGRADE AMNESIA [None]
  - COGNITIVE DISORDER [None]
  - COMPULSIONS [None]
  - CONFUSIONAL STATE [None]
  - DELIRIUM [None]
  - DEPRESSION SUICIDAL [None]
  - DRUG DEPENDENCE [None]
  - DRUG INEFFECTIVE [None]
  - DRUG INTERACTION [None]
  - DRUG SCREEN POSITIVE [None]
  - FALL [None]
  - INCORRECT DOSE ADMINISTERED [None]
  - INJURY [None]
  - LOSS OF CONSCIOUSNESS [None]
  - MAJOR DEPRESSION [None]
  - MULTIPLE DRUG OVERDOSE INTENTIONAL [None]
  - NIGHTMARE [None]
  - PAIN [None]
  - POST-TRAUMATIC STRESS DISORDER [None]
  - PSYCHOTIC DISORDER [None]
  - REFUSAL OF TREATMENT BY PATIENT [None]
  - RETROGRADE AMNESIA [None]
  - SCAR [None]
  - STATUS EPILEPTICUS [None]
  - SUICIDAL BEHAVIOUR [None]
  - SUICIDAL IDEATION [None]
  - SUICIDE ATTEMPT [None]
  - THINKING ABNORMAL [None]
